FAERS Safety Report 6182740-X (Version None)
Quarter: 2009Q2

REPORT INFORMATION
  Report Type: 
  Country: None (occurrence: None)
  Receive Date: 20090505
  Receipt Date: 20090424
  Transmission Date: 20091009
  Serious: Yes (Disabling)
  Sender: FDA-Public Use
  Company Number: GXKR2007GB10422

PATIENT
  Age: 58 Year
  Sex: Male
  Weight: 85 kg

DRUGS (3)
  1. CO-CODAMOL (NGX)(ACETAMINOPHEN (PARACETAMOL), CODEINE PHOSPHATE) UNKNO [Suspect]
     Indication: SCIATICA
     Dosage: 2 DF, QID, ORAL
     Route: 048
     Dates: start: 20071026, end: 20071110
  2. DIAZEPAM [Concomitant]
  3. IRBESARTAN [Concomitant]

REACTIONS (2)
  - MALAISE [None]
  - RASH GENERALISED [None]
